FAERS Safety Report 6716307-9 (Version None)
Quarter: 2010Q2

REPORT INFORMATION
  Report Type: 
  Country: None (occurrence: None)
  Receive Date: 20100507
  Receipt Date: 20100426
  Transmission Date: 20101027
  Serious: Yes (Other)
  Sender: FDA-Public Use
  Company Number: PHHY2010US27252

PATIENT
  Sex: Male

DRUGS (1)
  1. TASIGNA [Suspect]
     Indication: CHRONIC MYELOID LEUKAEMIA
     Dosage: 400 MG, QD
     Route: 048
     Dates: start: 20100301, end: 20100405

REACTIONS (6)
  - BILE DUCT STENT INSERTION [None]
  - BILIARY NEOPLASM [None]
  - CHOLECYSTITIS ACUTE [None]
  - CHROMATURIA [None]
  - LIVER DISORDER [None]
  - YELLOW SKIN [None]
